FAERS Safety Report 9053383 (Version 1)
Quarter: 2013Q1

REPORT INFORMATION
  Report Type: Spontaneous
  Country: US (occurrence: US)
  Receive Date: 20130208
  Receipt Date: 20130208
  Transmission Date: 20140127
  Serious: No
  Sender: FDA-Public Use
  Company Number: US-MYLANLABS-2012S1024522

PATIENT
  Age: 33 Year
  Sex: Male
  Weight: 90.72 kg

DRUGS (1)
  1. MORPHINE SULFATE EXTENDED-RELEASE TABLETS ` [Suspect]
     Indication: CANCER PAIN
     Route: 048
     Dates: start: 20121119

REACTIONS (2)
  - Drug effect decreased [Not Recovered/Not Resolved]
  - Pain [Not Recovered/Not Resolved]
